FAERS Safety Report 10674991 (Version 2)
Quarter: 2014Q4

REPORT INFORMATION
  Report Type: Spontaneous
  Country: DK (occurrence: DK)
  Receive Date: 20141224
  Receipt Date: 20141224
  Transmission Date: 20150529
  Serious: Yes (Hospitalization, Other)
  Sender: FDA-Public Use
  Company Number: DK-BRISTOL-MYERS SQUIBB COMPANY-BMS-2014-000227

PATIENT
  Age: 91 Year
  Sex: Male

DRUGS (10)
  1. UNIKALK SENIOR/SILVER [Concomitant]
  2. DIAZEPAM. [Concomitant]
     Active Substance: DIAZEPAM
  3. DIGOXIN. [Concomitant]
     Active Substance: DIGOXIN
  4. LOSARSTAD [Concomitant]
  5. ZOPICLON [Concomitant]
     Active Substance: ZOPICLONE
  6. APIXABAN [Suspect]
     Active Substance: APIXABAN
     Indication: CEREBROVASCULAR ACCIDENT PROPHYLAXIS
     Dosage: STYRKE: 2,5MG
     Route: 048
     Dates: start: 20140825, end: 20141114
  7. MIANSERIN ^MYLAN^ [Concomitant]
  8. MOVICOL [Concomitant]
     Active Substance: POLYETHYLENE GLYCOL 3350\POTASSIUM CHLORIDE\SODIUM BICARBONATE\SODIUM CHLORIDE
  9. TOLTERODINE [Concomitant]
     Active Substance: TOLTERODINE
  10. PINEX [Concomitant]
     Active Substance: ACETAMINOPHEN

REACTIONS (4)
  - Fall [Unknown]
  - Subdural haematoma [Recovering/Resolving]
  - Nausea [Recovering/Resolving]
  - Headache [Recovering/Resolving]

NARRATIVE: CASE EVENT DATE: 20141101
